FAERS Safety Report 4425349-8 (Version None)
Quarter: 2004Q3

REPORT INFORMATION
  Report Type: 
  Country: None (occurrence: None)
  Receive Date: 20040719
  Receipt Date: 20030623
  Transmission Date: 20050211
  Serious: Yes (Hospitalization)
  Sender: FDA-Public Use
  Company Number: 174765

PATIENT
  Age: 49 Year
  Sex: Female
  Weight: 86.1834 kg

DRUGS (11)
  1. AVONEX [Suspect]
     Indication: MULTIPLE SCLEROSIS
     Dates: start: 20000101, end: 20030501
  2. AVONEX [Suspect]
     Indication: MULTIPLE SCLEROSIS
     Dosage: 30 MCG QW IM
     Route: 030
     Dates: start: 20030501
  3. FLONASE [Concomitant]
  4. BACLOFEN [Concomitant]
  5. ZANAFLEX [Concomitant]
  6. MACRODANTIN [Concomitant]
  7. RANITIDINE [Concomitant]
  8. PREVACID [Concomitant]
  9. WELLBUTRIN [Concomitant]
  10. DARVOCET-N 100 [Concomitant]
  11. TYLENOL W/ CODEINE [Concomitant]

REACTIONS (3)
  - INSOMNIA [None]
  - MULTIPLE SCLEROSIS [None]
  - MULTIPLE SCLEROSIS RELAPSE [None]
